FAERS Safety Report 7299906-8 (Version None)
Quarter: 2011Q1

REPORT INFORMATION
  Report Type: 
  Country: None (occurrence: None)
  Receive Date: 20110217
  Receipt Date: 20110207
  Transmission Date: 20110831
  Serious: Yes (Other)
  Sender: FDA-Public Use
  Company Number: GB-BAXTER-2011BH003397

PATIENT
  Age: 2 Year
  Sex: Male

DRUGS (5)
  1. FEIBA [Suspect]
     Indication: FACTOR VIII DEFICIENCY
     Route: 065
  2. FACTOR VIII, UNSPECIFIED [Suspect]
     Indication: FACTOR VIII DEFICIENCY
     Route: 065
  3. NOVASEVEN [Suspect]
     Indication: FACTOR VIII DEFICIENCY
     Route: 065
  4. FACTOR VIII, UNSPECIFIED [Suspect]
     Indication: IMMUNE TOLERANCE INDUCTION
     Route: 065
  5. RITUXIMAB [Suspect]
     Indication: FACTOR VIII DEFICIENCY
     Route: 065

REACTIONS (1)
  - FACTOR VIII INHIBITION [None]
